FAERS Safety Report 9970549 (Version 1)
Quarter: 2014Q1

REPORT INFORMATION
  Report Type: Spontaneous
  Country: US (occurrence: None)
  Receive Date: 20140305
  Receipt Date: 20140305
  Transmission Date: 20141002
  Serious: Yes (Hospitalization)
  Sender: FDA-Public Use
  Company Number: None

PATIENT
  Age: 16 Year
  Sex: Female
  Weight: 63.5 kg

DRUGS (1)
  1. EPIDUO [Suspect]
     Dosage: APPLIED TO A SURFACE, USUALLY THE SKIN
     Route: 061

REACTIONS (8)
  - Mass [None]
  - Lethargy [None]
  - Dizziness [None]
  - Headache [None]
  - Vision blurred [None]
  - Visual field defect [None]
  - Optic nerve disorder [None]
  - Educational problem [None]
